FAERS Safety Report 19283925 (Version 2)
Quarter: 2021Q2

REPORT INFORMATION
  Report Type: Spontaneous
  Country: US (occurrence: US)
  Receive Date: 20210521
  Receipt Date: 20210527
  Transmission Date: 20210717
  Serious: Yes (Other)
  Sender: FDA-Public Use
  Company Number: US-PFIZER INC-2021539915

PATIENT
  Age: 53 Year
  Sex: Female

DRUGS (11)
  1. ZOLOFT [Suspect]
     Active Substance: SERTRALINE HYDROCHLORIDE
     Dosage: 50 MG
  2. ZOLOFT [Suspect]
     Active Substance: SERTRALINE HYDROCHLORIDE
     Dosage: 25 MG
  3. ABILIFY [Suspect]
     Active Substance: ARIPIPRAZOLE
     Dosage: 2.5 MG, 1X/DAY (2HR BEFORE BED TIME)
  4. QUETIAPINE FUMARATE. [Suspect]
     Active Substance: QUETIAPINE FUMARATE
     Dosage: 100 MG
  5. LORAZEPAM. [Suspect]
     Active Substance: LORAZEPAM
     Dosage: 1 MG, AS NEEDED
  6. ZOLOFT [Suspect]
     Active Substance: SERTRALINE HYDROCHLORIDE
     Indication: DEPRESSION
     Dosage: 75 MG
  7. BUSPIRONE [Suspect]
     Active Substance: BUSPIRONE HYDROCHLORIDE
     Dosage: 50 MG, 3X/DAY (GRADUALLY INCREASED)
     Route: 048
  8. QUETIAPINE FUMARATE. [Suspect]
     Active Substance: QUETIAPINE FUMARATE
     Dosage: 200 MG
  9. SERTRALINE HCL [Suspect]
     Active Substance: SERTRALINE HYDROCHLORIDE
     Dosage: UNK
  10. REXULTI [Suspect]
     Active Substance: BREXPIPRAZOLE
     Dosage: UNK
  11. QUETIAPINE FUMARATE. [Suspect]
     Active Substance: QUETIAPINE FUMARATE
     Dosage: 300 MG

REACTIONS (9)
  - Diarrhoea [Unknown]
  - Insomnia [Unknown]
  - Abdominal discomfort [Unknown]
  - Depression [Unknown]
  - Suicidal behaviour [Unknown]
  - Crying [Unknown]
  - Fatigue [Unknown]
  - Constipation [Unknown]
  - Laziness [Unknown]
